FAERS Safety Report 9061362 (Version 1)
Quarter: 2013Q1

REPORT INFORMATION
  Report Type: Report from Study
  Country: BE (occurrence: DE)
  Receive Date: 20130204
  Receipt Date: 20130204
  Transmission Date: 20140127
  Serious: Yes (Other)
  Sender: FDA-Public Use
  Company Number: BE-009507513-1302DEU000138

PATIENT
  Age: 69 Year
  Sex: Female

DRUGS (6)
  1. INVANZ [Suspect]
     Indication: DIVERTICULAR PERFORATION
     Dosage: 1 G, QD
     Route: 042
     Dates: start: 20070815, end: 20070815
  2. CLEXANE (ENOXAPARIN SODIUM) [Concomitant]
     Indication: THROMBOSIS PROPHYLAXIS
     Dosage: UNK
     Dates: start: 20070815, end: 20070827
  3. BROMUC [Concomitant]
     Indication: INFECTION PROPHYLAXIS
     Dosage: UNK
     Dates: start: 20070814, end: 20070818
  4. DIPIDOLOR [Concomitant]
     Indication: PAIN PROPHYLAXIS
     Dosage: UNK
     Dates: start: 20070815, end: 20070815
  5. DIPIDOLOR [Concomitant]
     Dosage: UNK
     Dates: start: 20070816, end: 20070818
  6. PASPERTIN [Concomitant]
     Indication: PROPHYLAXIS OF NAUSEA AND VOMITING
     Dosage: UNK

REACTIONS (2)
  - Atrial fibrillation [Recovered/Resolved]
  - Atrial fibrillation [Recovered/Resolved]
